FAERS Safety Report 9645386 (Version 1)
Quarter: 2013Q4

REPORT INFORMATION
  Report Type: Spontaneous
  Country: US (occurrence: US)
  Receive Date: 20131025
  Receipt Date: 20131025
  Transmission Date: 20140711
  Serious: Yes (Hospitalization)
  Sender: FDA-Public Use
  Company Number: US-PFIZER INC-2013302421

PATIENT
  Age: 66 Year
  Sex: Female

DRUGS (2)
  1. PRISTIQ [Suspect]
     Indication: DEPRESSION
     Dosage: 50 MG, ONCE A DAY
     Route: 048
  2. VERAPAMIL [Concomitant]
     Dosage: UNK

REACTIONS (3)
  - Large intestine perforation [Unknown]
  - Diverticulitis [Unknown]
  - Infection [Unknown]
